FAERS Safety Report 6579653-8 (Version None)
Quarter: 2010Q1

REPORT INFORMATION
  Report Type: 
  Country: None (occurrence: None)
  Receive Date: 20100212
  Receipt Date: 20100129
  Transmission Date: 20100710
  Serious: Yes (Other)
  Sender: FDA-Public Use
  Company Number: US-ROCHE-645182

PATIENT
  Sex: Female
  Weight: 61.2 kg

DRUGS (4)
  1. ACCUTANE [Suspect]
     Indication: ACNE
     Route: 048
     Dates: start: 20020812, end: 20040101
  2. CLINDAMYCIN [Concomitant]
  3. TETRACYCLINE [Concomitant]
  4. CLEOCIN [Concomitant]

REACTIONS (12)
  - COLONIC OBSTRUCTION [None]
  - CROHN'S DISEASE [None]
  - DEPRESSION [None]
  - DERMATITIS [None]
  - DRY EYE [None]
  - DRY SKIN [None]
  - INFLAMMATORY BOWEL DISEASE [None]
  - NASAL DRYNESS [None]
  - PRURITUS [None]
  - PSORIATIC ARTHROPATHY [None]
  - RHEUMATOID ARTHRITIS [None]
  - SKIN PAPILLOMA [None]
